FAERS Safety Report 10380367 (Version 1)
Quarter: 2014Q1

REPORT INFORMATION
  Report Type: Spontaneous
  Country: US (occurrence: None)
  Receive Date: 20140306
  Receipt Date: 20140306
  Transmission Date: 20141002
  Serious: Yes (Hospitalization)
  Sender: FDA-Public Use
  Company Number: 163-21880-13113793

PATIENT
  Age: 72 Year
  Sex: Male

DRUGS (17)
  1. REVLIMID (LENALIDOMIDE) (15 MILLIGRAM, CAPSULES) [Suspect]
     Indication: PLASMA CELL MYELOMA
     Dosage: 15 MG, 21 IN 28 D, PO
     Route: 048
     Dates: start: 20130930, end: 2013
  2. COUMADIN (WARFARIN SODIUM) [Concomitant]
  3. SPIRIVA (TIOTROPIUM BROMIDE) [Concomitant]
  4. DEXAMETHASONE [Concomitant]
  5. OMEPRAZOLE [Concomitant]
  6. FINASTERIDE [Concomitant]
  7. ACYCLOVIR (ACICLOVIR) [Concomitant]
  8. TRAMADOL HCL (TRAMADOL HYDROCHLORIDE) [Concomitant]
  9. JANUVIA (SITAGLIPTIN PHOSPHATE) [Concomitant]
  10. COMPAZINE (PROCHLORPERAZINE EDISYLATE) [Concomitant]
  11. WARFARIN [Concomitant]
  12. FERROUS SULFATE [Concomitant]
  13. CRESTOR (ROSUVASTATIN) [Concomitant]
  14. LINZESS (LINACLOTIDE) [Concomitant]
  15. PROCHLORPERAZINE MALEATE [Concomitant]
  16. VITAMIN D2 (ERGOCALCIFEROL) [Concomitant]
  17. ALEVE (NAPROXEN SODIUM) [Concomitant]

REACTIONS (5)
  - Anaemia [None]
  - Dizziness [None]
  - Asthenia [None]
  - Pyrexia [None]
  - Gastrointestinal haemorrhage [None]
